FAERS Safety Report 9203161 (Version 1)
Quarter: 2013Q1

REPORT INFORMATION
  Report Type: Spontaneous
  Country: GB (occurrence: None)
  Receive Date: 20130328
  Receipt Date: 20130328
  Transmission Date: 20140127
  Serious: Yes (Hospitalization)
  Sender: FDA-Public Use
  Company Number: 2013-05381

PATIENT
  Sex: Female

DRUGS (1)
  1. DOXYCYCLINE [Suspect]
     Indication: LOWER RESPIRATORY TRACT INFECTION
     Dates: start: 20130207

REACTIONS (8)
  - Dyspnoea [None]
  - Malaise [None]
  - Cold sweat [None]
  - Speech disorder [None]
  - Swollen tongue [None]
  - Rash [None]
  - Dizziness [None]
  - Headache [None]
